FAERS Safety Report 14123752 (Version 1)
Quarter: 2017Q4

REPORT INFORMATION
  Report Type: Spontaneous
  Country: US (occurrence: None)
  Receive Date: 20171025
  Receipt Date: 20171025
  Transmission Date: 20180321
  Serious: No
  Sender: FDA-Public Use
  Company Number: None

PATIENT

DRUGS (2)
  1. EPINEPHRINE. [Suspect]
     Active Substance: EPINEPHRINE
  2. EPINEPHRINE. [Suspect]
     Active Substance: EPINEPHRINE

REACTIONS (3)
  - Product preparation error [None]
  - Product packaging confusion [None]
  - Product selection error [None]
